FAERS Safety Report 9353469 (Version 1)
Quarter: 2013Q2

REPORT INFORMATION
  Report Type: Spontaneous
  Country: JP (occurrence: JP)
  Receive Date: 20130618
  Receipt Date: 20130618
  Transmission Date: 20140414
  Serious: Yes (Other)
  Sender: FDA-Public Use
  Company Number: JP-ASTRAZENECA-2013SE41021

PATIENT
  Sex: 0

DRUGS (4)
  1. MARCAIN SPINAL [Suspect]
     Route: 064
  2. CEFAZOLIN SODIUM [Concomitant]
     Route: 064
  3. LIDOCAINE [Concomitant]
     Route: 064
  4. MORPHINE HYDROCHLORIDE HYDRATE [Concomitant]
     Route: 064

REACTIONS (3)
  - Apgar score low [Recovering/Resolving]
  - Neonatal respiratory depression [Recovering/Resolving]
  - Acidosis [Recovering/Resolving]
